FAERS Safety Report 7382933-X (Version None)
Quarter: 2011Q1

REPORT INFORMATION
  Report Type: 
  Country: None (occurrence: None)
  Receive Date: 20110330
  Receipt Date: 20101001
  Transmission Date: 20110831
  Serious: Yes (Hospitalization, Other)
  Sender: FDA-Public Use
  Company Number: US-BAYER-201031207NA

PATIENT
  Sex: Female
  Weight: 57.596 kg

DRUGS (3)
  1. YASMIN [Suspect]
     Indication: PRODUCT USED FOR UNKNOWN INDICATION
     Dosage: UNK UNK, UNK
     Route: 065
     Dates: start: 20011001, end: 20050501
  2. YASMIN [Suspect]
     Dosage: UNK
     Dates: start: 20050109, end: 20051211
  3. YASMIN [Suspect]
     Dosage: UNK
     Dates: start: 20031214, end: 20041104

REACTIONS (2)
  - CHOLELITHIASIS [None]
  - CHOLECYSTITIS ACUTE [None]
